FAERS Safety Report 10370575 (Version 1)
Quarter: 2014Q1

REPORT INFORMATION
  Report Type: Spontaneous
  Country: US (occurrence: None)
  Receive Date: 20140306
  Receipt Date: 20140306
  Transmission Date: 20141002
  Serious: Yes (Other)
  Sender: FDA-Public Use
  Company Number: 163-21880-13011062

PATIENT
  Age: 84 Year
  Sex: Male
  Weight: 77.57 kg

DRUGS (7)
  1. REVLIMID (LENALIDOMIDE) (CAPSULES) [Suspect]
     Indication: PLASMA CELL MYELOMA
     Dosage: 10 MG, 21 IN 21 D, PO
     Route: 048
     Dates: start: 20110412
  2. NEXIUM (ESOMEPRAZOLE) (UNKNOWN) [Concomitant]
  3. LIPITOR (ATORVASTATIN) (UNKNOWN) [Concomitant]
  4. LISINOPRIL (LISINOPRIL) (UNKNOWN) (LISINOPRIL) [Concomitant]
  5. SYMBICORT (SYMBICORT TURBOHALER ^DRACO^) (UNKNOWN) [Concomitant]
  6. TEMAZEPAM (TEMAZEPAM) (UNKNOWN) [Concomitant]
  7. COUMADIN (WARFARIN SODIUM) (UNKNOWN) [Concomitant]

REACTIONS (6)
  - Overdose [None]
  - Haemoglobin decreased [None]
  - Platelet count decreased [None]
  - Neutropenia [None]
  - Asthenia [None]
  - Abnormal dreams [None]
